FAERS Safety Report 17629594 (Version 1)
Quarter: 2020Q2

REPORT INFORMATION
  Report Type: Spontaneous
  Country: US (occurrence: US)
  Receive Date: 20200406
  Receipt Date: 20200406
  Transmission Date: 20200713
  Serious: No
  Sender: FDA-Public Use
  Company Number: US-PFIZER INC-2020139383

PATIENT
  Age: 76 Year
  Sex: Female
  Weight: 42.18 kg

DRUGS (8)
  1. HYDROCORTISONE ACETATE. [Suspect]
     Active Substance: HYDROCORTISONE ACETATE
  2. SULFAMETHOXAZOLE/TRIMETHOPRIM [Suspect]
     Active Substance: SULFAMETHOXAZOLE\TRIMETHOPRIM
  3. ERYTHROMYCIN. [Suspect]
     Active Substance: ERYTHROMYCIN
  4. CIPROFLOXACIN. [Suspect]
     Active Substance: CIPROFLOXACIN
  5. CORTISONE [Suspect]
     Active Substance: CORTISONE
  6. METOCLOPRAMIDE HCL [Suspect]
     Active Substance: METOCLOPRAMIDE HYDROCHLORIDE
  7. NAPROXEN. [Suspect]
     Active Substance: NAPROXEN
  8. PREDNISONE. [Suspect]
     Active Substance: PREDNISONE

REACTIONS (1)
  - Drug hypersensitivity [Unknown]
